FAERS Safety Report 18730239 (Version 3)
Quarter: 2021Q3

REPORT INFORMATION
  Report Type: Spontaneous
  Country: US (occurrence: US)
  Receive Date: 20210112
  Receipt Date: 20210817
  Transmission Date: 20211014
  Serious: Yes (Other)
  Sender: FDA-Public Use
  Company Number: US-SA-2021SA005851

PATIENT
  Age: 64 Year
  Sex: Female

DRUGS (2)
  1. TOUJEO [Suspect]
     Active Substance: INSULIN GLARGINE
     Indication: TYPE 2 DIABETES MELLITUS
     Dosage: 80 UNITS ONCE DAILY
     Route: 065
  2. METFORMIN [Concomitant]
     Active Substance: METFORMIN HYDROCHLORIDE
     Dosage: UNK, TWICE DAILY
     Route: 065

REACTIONS (4)
  - Blood glucose increased [Unknown]
  - Device issue [Unknown]
  - Neuropathy peripheral [Unknown]
  - COVID-19 [Unknown]
